FAERS Safety Report 7029786-7 (Version None)
Quarter: 2010Q4

REPORT INFORMATION
  Report Type: 
  Country: None (occurrence: None)
  Receive Date: 20101001
  Receipt Date: 20100915
  Transmission Date: 20110411
  Serious: Yes (Hospitalization, Disabling)
  Sender: FDA-Public Use
  Company Number: TUK2010A00259

PATIENT
  Age: 77 Year
  Sex: Male

DRUGS (8)
  1. ACTOS [Suspect]
     Indication: PRODUCT USED FOR UNKNOWN INDICATION
     Dosage: (45 MG)
     Dates: end: 20100903
  2. ASPIRIN [Concomitant]
  3. FINASTERIDE [Concomitant]
  4. GLIMEPIRIDE [Concomitant]
  5. METFORMIN HCL [Concomitant]
  6. OMEPRAZOLE [Concomitant]
  7. RAMIPRIL [Concomitant]
  8. SENNA (SENNA ALEXANDRINA) [Concomitant]

REACTIONS (1)
  - CEREBROVASCULAR ACCIDENT [None]
